FAERS Safety Report 4358062-6 (Version None)
Quarter: 2004Q2

REPORT INFORMATION
  Report Type: 
  Country: None (occurrence: None)
  Receive Date: 20040513
  Receipt Date: 20040502
  Transmission Date: 20050107
  Serious: Yes (Other)
  Sender: FDA-Public Use
  Company Number: 2004029617

PATIENT
  Age: 25 Year
  Sex: Female
  Weight: 47.6277 kg

DRUGS (2)
  1. UNISOM SLEEPGELS (DIPHENHYDRAMINE) [Suspect]
     Indication: INTENTIONAL OVERDOSE
     Dosage: 32 SLEEPGELS AT ONCE, ORAL
     Route: 048
     Dates: start: 20040502, end: 20040502
  2. ETHANOL (ETHANOL) [Suspect]
     Dosage: ORAL
     Route: 048
     Dates: start: 20040501

REACTIONS (2)
  - CONSCIOUSNESS FLUCTUATING [None]
  - INTENTIONAL OVERDOSE [None]
